FAERS Safety Report 5786207-X (Version None)
Quarter: 2008Q2

REPORT INFORMATION
  Report Type: 
  Country: None (occurrence: None)
  Receive Date: 20080624
  Receipt Date: 20080619
  Transmission Date: 20081010
  Serious: Yes (Hospitalization)
  Sender: FDA-Public Use
  Company Number: FR-WYE-G01724208

PATIENT
  Sex: Female
  Weight: 2.1 kg

DRUGS (8)
  1. RHINADVIL [Suspect]
     Dosage: 5 TABLETS TODAL DAILY
     Route: 064
     Dates: start: 20080207, end: 20080211
  2. EUPHYTOSE [Suspect]
     Dosage: 2 DOSE-FORM TOTAL DAILY
     Route: 064
     Dates: start: 20071101, end: 20080214
  3. GAVISCON [Concomitant]
     Dosage: 3 DOSES TOTAL DAILY
     Route: 064
     Dates: start: 20070501, end: 20080214
  4. XANAX [Suspect]
     Dosage: 2 MG TOTAL DAILY
     Route: 064
     Dates: start: 20070501, end: 20071101
  5. ACETAMINOPHEN [Concomitant]
     Dosage: AS REQUIRED
     Route: 064
  6. TARDYFERON [Concomitant]
     Dosage: UNKNOWN
     Route: 064
     Dates: start: 20070501, end: 20080214
  7. NAUSICALM [Suspect]
     Dosage: 3 DOSE-FORM TOTAL DAILY
     Route: 064
     Dates: end: 20080214
  8. SPASFON [Concomitant]
     Dosage: 6 DOSE-FORM TOTAL WEEKLY
     Route: 064
     Dates: end: 20080214

REACTIONS (8)
  - AGITATION NEONATAL [None]
  - DRUG EXPOSURE DURING PREGNANCY [None]
  - DRUG WITHDRAWAL SYNDROME NEONATAL [None]
  - ELECTROENCEPHALOGRAM ABNORMAL [None]
  - FEVER NEONATAL [None]
  - FOETAL GROWTH RETARDATION [None]
  - HYPERTONIA NEONATAL [None]
  - TREMOR NEONATAL [None]
